FAERS Safety Report 25212366 (Version 4)
Quarter: 2025Q3

REPORT INFORMATION
  Report Type: Report from Study
  Country: EU (occurrence: EU)
  Receive Date: 20250418
  Receipt Date: 20250709
  Transmission Date: 20251021
  Serious: Yes (Hospitalization, Other)
  Sender: TAKEDA
  Company Number: EU-TAKEDA-2025TUS037878

PATIENT
  Sex: Female
  Weight: 69 kg

DRUGS (3)
  1. FRUQUINTINIB [Suspect]
     Active Substance: FRUQUINTINIB
     Indication: Colorectal cancer metastatic
  2. LOPERAMIDE [Concomitant]
     Active Substance: LOPERAMIDE
     Indication: Prophylaxis
     Dosage: 2 MILLIGRAM, QD
     Dates: start: 20250407
  3. METAMIZOL [Concomitant]
     Active Substance: METAMIZOLE SODIUM
     Indication: Prophylaxis

REACTIONS (3)
  - Constipation [Recovered/Resolved]
  - Diverticulitis [Recovered/Resolved]
  - Hypertensive crisis [Recovered/Resolved]

NARRATIVE: CASE EVENT DATE: 20250409
